FAERS Safety Report 20486975 (Version 1)
Quarter: 2022Q1

REPORT INFORMATION
  Report Type: Spontaneous
  Country: US (occurrence: US)
  Receive Date: 20220217
  Receipt Date: 20220217
  Transmission Date: 20220423
  Serious: No
  Sender: FDA-Public Use
  Company Number: US-BAUSCH-BL-2022-004095

PATIENT
  Age: 75 Year
  Sex: Female
  Weight: 55.8 kg

DRUGS (4)
  1. PROLENSA [Suspect]
     Active Substance: BROMFENAC SODIUM
     Indication: Postoperative care
     Route: 047
  2. OFLOXACIN [Suspect]
     Active Substance: OFLOXACIN
     Indication: Postoperative care
     Route: 047
  3. INVELTYS [Suspect]
     Active Substance: LOTEPREDNOL ETABONATE
     Indication: Postoperative care
     Dosage: 1 DROP INTO THE SURGICAL EYE, 2 OR 3X/DAY (3 WEEKS IN THE FIRST EYE)
     Route: 047
     Dates: start: 202112, end: 202201
  4. INVELTYS [Suspect]
     Active Substance: LOTEPREDNOL ETABONATE
     Dosage: 1 DROP INTO THE SURGICAL EYE, 2 OR 3X/DAY (3 WEEKS ON THE 2ND EYE)
     Route: 047
     Dates: start: 202101, end: 202201

REACTIONS (2)
  - Nausea [Recovered/Resolved]
  - Dizziness [Recovered/Resolved]

NARRATIVE: CASE EVENT DATE: 20220101
